FAERS Safety Report 23468760 (Version 3)
Quarter: 2024Q2

REPORT INFORMATION
  Report Type: Spontaneous
  Country: JP (occurrence: JP)
  Receive Date: 20240202
  Receipt Date: 20240408
  Transmission Date: 20240716
  Serious: Yes (Hospitalization, Other)
  Sender: FDA-Public Use
  Company Number: JP-CHUGAI-2024002533AA

PATIENT
  Age: 9 Decade
  Sex: Male

DRUGS (3)
  1. AVASTIN [Suspect]
     Active Substance: BEVACIZUMAB
     Indication: Hepatocellular carcinoma
     Route: 065
     Dates: start: 20230622, end: 20230919
  2. TECENTRIQ [Suspect]
     Active Substance: ATEZOLIZUMAB
     Indication: Hepatocellular carcinoma
     Dosage: UNK
     Route: 065
     Dates: start: 20230622, end: 20230919
  3. TECENTRIQ [Suspect]
     Active Substance: ATEZOLIZUMAB
     Dosage: UNK
     Route: 065
     Dates: start: 20231031

REACTIONS (2)
  - Nephrotic syndrome [Recovering/Resolving]
  - Disease progression [Unknown]

NARRATIVE: CASE EVENT DATE: 20240101
